FAERS Safety Report 5371801-0 (Version None)
Quarter: 2007Q2

REPORT INFORMATION
  Report Type: 
  Country: None (occurrence: None)
  Receive Date: 20070627
  Receipt Date: 20070622
  Transmission Date: 20071010
  Serious: Yes (Death)
  Sender: FDA-Public Use
  Company Number: CA-JNJFOC-20070604309

PATIENT
  Age: 39 Year
  Sex: Male
  Weight: 59 kg

DRUGS (9)
  1. EXTRA STRENGTH TYLENOL [Suspect]
  2. EXTRA STRENGTH TYLENOL [Suspect]
     Indication: SUICIDE ATTEMPT
  3. COLACE [Concomitant]
  4. SENOKOT [Concomitant]
  5. IMOVANE [Concomitant]
  6. BACLOFEN [Concomitant]
  7. NOROXIN [Concomitant]
  8. CLAVULIN [Concomitant]
  9. NOVOTETRA [Concomitant]

REACTIONS (4)
  - COMPLETED SUICIDE [None]
  - DRUG TOXICITY [None]
  - HEPATOCELLULAR DAMAGE [None]
  - INTENTIONAL OVERDOSE [None]
